FAERS Safety Report 25842939 (Version 1)
Quarter: 2025Q3

REPORT INFORMATION
  Report Type: Report from Study
  Country: US (occurrence: US)
  Receive Date: 20250924
  Receipt Date: 20250924
  Transmission Date: 20251021
  Serious: Yes (Other)
  Sender: ABBVIE
  Company Number: US-ABBVIE-6332956

PATIENT
  Age: 66 Year
  Sex: Female

DRUGS (2)
  1. SKYRIZI [Suspect]
     Active Substance: RISANKIZUMAB-RZAA
     Indication: Psoriatic arthropathy
     Route: 058
     Dates: start: 20250223
  2. SKYRIZI [Suspect]
     Active Substance: RISANKIZUMAB-RZAA
     Route: 058
     Dates: start: 20250612

REACTIONS (4)
  - Systemic lupus erythematosus [Unknown]
  - Diabetes mellitus [Unknown]
  - Alopecia [Unknown]
  - Skin burning sensation [Not Recovered/Not Resolved]

NARRATIVE: CASE EVENT DATE: 20250101
